FAERS Safety Report 5776532-0 (Version None)
Quarter: 2008Q2

REPORT INFORMATION
  Report Type: 
  Country: None (occurrence: None)
  Receive Date: 20080618
  Receipt Date: 20080606
  Transmission Date: 20081010
  Serious: Yes (Hospitalization, Other)
  Sender: FDA-Public Use
  Company Number: US-ROCHE-432360

PATIENT
  Sex: Male

DRUGS (2)
  1. ACCUTANE [Suspect]
     Indication: DRUG USE FOR UNKNOWN INDICATION
     Route: 048
     Dates: start: 19870727, end: 19871129
  2. ACCUTANE [Suspect]
     Route: 048
     Dates: start: 19940802, end: 19940902

REACTIONS (25)
  - ABDOMINAL ADHESIONS [None]
  - ADHESION [None]
  - ANAEMIA [None]
  - ANAL FISSURE [None]
  - ASTHMA [None]
  - BACTERIA BLOOD IDENTIFIED [None]
  - CHRONIC OBSTRUCTIVE PULMONARY DISEASE [None]
  - COLITIS [None]
  - COLITIS ULCERATIVE [None]
  - COUGH [None]
  - CROHN'S DISEASE [None]
  - DEHYDRATION [None]
  - DEPRESSION [None]
  - EYE PAIN [None]
  - GASTROENTERITIS SALMONELLA [None]
  - GENERALISED ANXIETY DISORDER [None]
  - HEAD DISCOMFORT [None]
  - HERNIA REPAIR [None]
  - INFLAMMATORY BOWEL DISEASE [None]
  - IRRITABLE BOWEL SYNDROME [None]
  - MUSCULOSKELETAL CHEST PAIN [None]
  - OBSESSIVE-COMPULSIVE PERSONALITY DISORDER [None]
  - PLATELET COUNT INCREASED [None]
  - RASH [None]
  - SMALL INTESTINAL OBSTRUCTION [None]
